FAERS Safety Report 14556232 (Version 3)
Quarter: 2018Q1

REPORT INFORMATION
  Report Type: Spontaneous
  Country: FR (occurrence: FR)
  Receive Date: 20180221
  Receipt Date: 20180319
  Transmission Date: 20180509
  Serious: Yes (Other)
  Sender: FDA-Public Use
  Company Number: FR-MERCK KGAA-2042366

PATIENT
  Age: 60 Year
  Sex: Female
  Weight: 77 kg

DRUGS (1)
  1. NOVOTHYROX [Suspect]
     Active Substance: LEVOTHYROXINE SODIUM
     Indication: THYROIDECTOMY
     Route: 048
     Dates: start: 20170501

REACTIONS (17)
  - Gastrointestinal disorder [Recovered/Resolved]
  - Formication [Recovered/Resolved]
  - Arthralgia [Not Recovered/Not Resolved]
  - Dyspnoea [Recovered/Resolved]
  - Irritability [Not Recovered/Not Resolved]
  - Muscle spasms [Recovered/Resolved]
  - Back pain [Recovered/Resolved]
  - Stress [Not Recovered/Not Resolved]
  - Abdominal distension [Recovered/Resolved]
  - Blood thyroid stimulating hormone [Recovered/Resolved]
  - Muscle spasms [Not Recovered/Not Resolved]
  - Vertigo [Recovered/Resolved]
  - Myalgia [Not Recovered/Not Resolved]
  - Sciatica [Recovered/Resolved]
  - Anxiety [Not Recovered/Not Resolved]
  - Joint ankylosis [Recovered/Resolved]
  - Tendonitis [Recovered/Resolved]

NARRATIVE: CASE EVENT DATE: 201705
